FAERS Safety Report 21980132 (Version 1)
Quarter: 2023Q1

REPORT INFORMATION
  Report Type: Report from Study
  Country: IT (occurrence: IT)
  Receive Date: 20230210
  Receipt Date: 20230210
  Transmission Date: 20230418
  Serious: Yes (Death)
  Sender: FDA-Public Use
  Company Number: IT-KARYOPHARM-2023KPT000618

PATIENT
  Age: 71 Year
  Sex: Male

DRUGS (6)
  1. SELINEXOR [Suspect]
     Active Substance: SELINEXOR
     Indication: Myelofibrosis
     Dosage: 60 MG, WEEKLY
     Route: 048
     Dates: start: 20220729, end: 20220926
  2. SULFAMETHOXAZOLE\TRIMETHOPRIM [Concomitant]
     Active Substance: SULFAMETHOXAZOLE\TRIMETHOPRIM
     Dosage: 1 DOSAGE FORM, 3X/WEEK
     Route: 048
  3. ASPIRIN [Concomitant]
     Active Substance: ASPIRIN
     Dosage: 100 MG, QD
     Route: 048
  4. LEVOTHYROXINE [Concomitant]
     Active Substance: LEVOTHYROXINE
     Dosage: 75 UG, QD
     Route: 048
  5. EPOETIN ZETA [Concomitant]
     Active Substance: ERYTHROPOIETIN
     Dosage: 30000 IU, WEEKLY
     Route: 058
  6. ONDANSETRON [Concomitant]
     Active Substance: ONDANSETRON
     Dosage: 16 MG, WEEKLY
     Route: 048

REACTIONS (1)
  - Sepsis [Fatal]
